FAERS Safety Report 21056519 (Version 1)
Quarter: 2022Q3

REPORT INFORMATION
  Report Type: Report from Study
  Country: CA (occurrence: CA)
  Receive Date: 20220708
  Receipt Date: 20220708
  Transmission Date: 20221027
  Serious: Yes (Other)
  Sender: FDA-Public Use
  Company Number: CA-BRISTOL-MYERS SQUIBB COMPANY-2022-063800

PATIENT
  Age: 78 Year
  Sex: Male
  Weight: 83.8 kg

DRUGS (1)
  1. REBLOZYL [Suspect]
     Active Substance: LUSPATERCEPT-AAMT
     Indication: Myelodysplastic syndrome
     Dosage: 2023-SE EXPIRY DATE
     Route: 058
     Dates: start: 20220512

REACTIONS (3)
  - Macular degeneration [Unknown]
  - Peripheral swelling [Recovering/Resolving]
  - Weight decreased [Unknown]
